FAERS Safety Report 24941404 (Version 1)
Quarter: 2025Q1

REPORT INFORMATION
  Report Type: Spontaneous
  Country: FR (occurrence: FR)
  Receive Date: 20250207
  Receipt Date: 20250207
  Transmission Date: 20250408
  Serious: Yes (Other)
  Sender: CELLTRION
  Company Number: FR-AMGEN-FRASP2024154158

PATIENT

DRUGS (2)
  1. ADALIMUMAB [Suspect]
     Active Substance: ADALIMUMAB
     Indication: Osteomyelitis
     Route: 058
  2. ADALIMUMAB [Suspect]
     Active Substance: ADALIMUMAB
     Dosage: 40 MILLIGRAM, Q2WK/DOSAGE1: UNIT=NOT AVAILABLE DOSAGE2: UNIT=NOT AVAILABLE
     Route: 058

REACTIONS (4)
  - Pancreatitis acute [Unknown]
  - Cholelithiasis [Unknown]
  - Drug effective for unapproved indication [Unknown]
  - Off label use [Unknown]
